FAERS Safety Report 6679963-X (Version None)
Quarter: 2010Q2

REPORT INFORMATION
  Report Type: 
  Country: None (occurrence: None)
  Receive Date: 20100413
  Receipt Date: 20100330
  Transmission Date: 20101027
  Serious: Yes (Hospitalization)
  Sender: FDA-Public Use
  Company Number: DE-MYLANLABS-2010S1005378

PATIENT
  Age: 16 Year
  Sex: Female

DRUGS (6)
  1. MOCLOBEMIDE [Suspect]
     Indication: DEPRESSION
     Route: 048
  2. MOCLOBEMIDE [Suspect]
     Indication: INTENTIONAL OVERDOSE
     Route: 048
  3. MOCLOBEMIDE [Suspect]
     Route: 048
  4. MOCLOBEMIDE [Suspect]
     Route: 048
  5. DOXEPIN HCL [Suspect]
     Indication: INTENTIONAL OVERDOSE
     Route: 065
  6. WICK MEDINAIT /00593201/ [Concomitant]
     Route: 065

REACTIONS (6)
  - COMA [None]
  - HYPOTHERMIA [None]
  - INTENTIONAL OVERDOSE [None]
  - MYDRIASIS [None]
  - RENAL FAILURE ACUTE [None]
  - RHABDOMYOLYSIS [None]
